FAERS Safety Report 23886934 (Version 1)
Quarter: 2024Q2

REPORT INFORMATION
  Report Type: Report from Study
  Country: US (occurrence: US)
  Receive Date: 20240523
  Receipt Date: 20240523
  Transmission Date: 20240717
  Serious: Yes (Other)
  Sender: FDA-Public Use
  Company Number: US-ETON PHARMACEUTICALS, INC-2024ETO000100

PATIENT

DRUGS (1)
  1. ALKINDI SPRINKLE [Suspect]
     Active Substance: HYDROCORTISONE
     Indication: Adrenal insufficiency
     Dosage: 1 MILLIGRAM, BID
     Route: 048
     Dates: start: 20240226, end: 20240429

REACTIONS (3)
  - Choking [Unknown]
  - Bronchiolitis [Unknown]
  - Parainfluenzae virus infection [Unknown]
